FAERS Safety Report 5006778-0 (Version None)
Quarter: 2006Q2

REPORT INFORMATION
  Report Type: 
  Country: None (occurrence: None)
  Receive Date: 20060516
  Receipt Date: 20060425
  Transmission Date: 20061013
  Serious: Yes (Life-Threatening)
  Sender: FDA-Public Use
  Company Number: GXKR2006CA02324

PATIENT
  Age: 83 Year
  Sex: Female

DRUGS (6)
  1. CIPROFLOXACIN [Suspect]
     Dosage: 1000 MG, ORAL
     Route: 048
     Dates: start: 19970517, end: 19970530
  2. HEPARIN [Suspect]
     Dosage: 10000 U, SUBCUTANEOUS
     Route: 058
     Dates: start: 19970418, end: 19970530
  3. CHLORTHALIDONE [Concomitant]
  4. HYDROCHLOROTHIAZIDE [Concomitant]
  5. LASIX [Concomitant]
  6. RENEDIL (FELODIPINE) [Concomitant]

REACTIONS (11)
  - BLOOD CREATININE INCREASED [None]
  - COAGULOPATHY [None]
  - CONTUSION [None]
  - ERYTHEMA [None]
  - HAEMOLYTIC URAEMIC SYNDROME [None]
  - HEPARIN-INDUCED THROMBOCYTOPENIA [None]
  - IDIOPATHIC THROMBOCYTOPENIC PURPURA [None]
  - MICROANGIOPATHIC HAEMOLYTIC ANAEMIA [None]
  - OEDEMA PERIPHERAL [None]
  - ORAL MUCOSAL PETECHIAE [None]
  - TENDERNESS [None]
